FAERS Safety Report 10052665 (Version 1)
Quarter: 2014Q2

REPORT INFORMATION
  Report Type: Spontaneous
  Country: NL (occurrence: NL)
  Receive Date: 20140402
  Receipt Date: 20140402
  Transmission Date: 20141212
  Serious: Yes (Death, Hospitalization)
  Sender: FDA-Public Use
  Company Number: NL-JNJFOC-20140400554

PATIENT
  Age: 67 Year
  Sex: Female

DRUGS (8)
  1. RIVAROXABAN [Suspect]
     Indication: HIP ARTHROPLASTY
     Route: 048
  2. RIVAROXABAN [Suspect]
     Indication: THROMBOSIS PROPHYLAXIS
     Route: 048
  3. RIFAMPICIN [Interacting]
     Indication: STAPHYLOCOCCAL INFECTION
     Route: 048
  4. RIFAMPICIN [Interacting]
     Indication: POSTOPERATIVE WOUND INFECTION
     Route: 048
  5. CIPROFLOXACIN [Concomitant]
     Indication: STAPHYLOCOCCAL INFECTION
     Route: 048
  6. CIPROFLOXACIN [Concomitant]
     Indication: POSTOPERATIVE WOUND INFECTION
     Route: 048
  7. ACETYLSALICYLIC ACID [Concomitant]
     Indication: ACUTE CORONARY SYNDROME
     Route: 065
  8. AMOXICILLIN W/CLAVULANIC ACID [Concomitant]
     Indication: SEPSIS
     Route: 065

REACTIONS (4)
  - Pulmonary embolism [Fatal]
  - Drug level below therapeutic [Unknown]
  - Drug interaction [Unknown]
  - Drug effect decreased [Unknown]
